FAERS Safety Report 19372088 (Version 2)
Quarter: 2021Q2

REPORT INFORMATION
  Report Type: Spontaneous
  Country: IN (occurrence: IN)
  Receive Date: 20210604
  Receipt Date: 20210617
  Transmission Date: 20210717
  Serious: Yes (Other)
  Sender: FDA-Public Use
  Company Number: IN-LUPIN LIMITED-2021-08367

PATIENT
  Sex: Male

DRUGS (3)
  1. MULTIVITAMIN [Concomitant]
     Active Substance: VITAMINS
     Indication: PRODUCT USED FOR UNKNOWN INDICATION
     Dosage: UNK
     Route: 065
  2. CETIL INJ DRY VIAL 1.5 G [Suspect]
     Active Substance: CEFUROXIME SODIUM
     Indication: COVID-19 PNEUMONIA
     Dosage: 20 MILLILITER, BID
     Route: 065
     Dates: start: 20210516
  3. CETIL INJ DRY VIAL 1.5 G [Suspect]
     Active Substance: CEFUROXIME SODIUM
     Dosage: 20 MILLILITER, BID
     Route: 065
     Dates: start: 20210516

REACTIONS (7)
  - Skin irritation [Not Recovered/Not Resolved]
  - Burning sensation [Not Recovered/Not Resolved]
  - Off label use [Unknown]
  - Eating disorder [Not Recovered/Not Resolved]
  - Product reconstitution quality issue [Unknown]
  - Frequent bowel movements [Not Recovered/Not Resolved]
  - Product solubility abnormal [Unknown]

NARRATIVE: CASE EVENT DATE: 20210516
